FAERS Safety Report 5943418-8 (Version None)
Quarter: 2008Q4

REPORT INFORMATION
  Report Type: 
  Country: None (occurrence: None)
  Receive Date: 20081105
  Receipt Date: 20081105
  Transmission Date: 20090506
  Serious: Yes (Disabling)
  Sender: FDA-Public Use
  Company Number: None

PATIENT
  Age: 62 Year
  Sex: Male
  Weight: 72.5755 kg

DRUGS (6)
  1. LIPITOR [Suspect]
     Indication: ARTHRALGIA
     Dosage: 10MG DAILY PO
     Route: 048
     Dates: start: 20000910, end: 20070607
  2. LIPITOR [Suspect]
     Indication: MUSCULOSKELETAL STIFFNESS
     Dosage: 10MG DAILY PO
     Route: 048
     Dates: start: 20000910, end: 20070607
  3. LIPITOR [Suspect]
     Indication: MYALGIA
     Dosage: 10MG DAILY PO
     Route: 048
     Dates: start: 20000910, end: 20070607
  4. VYTORIN [Suspect]
     Indication: ARTHRALGIA
     Dosage: 10MG DAILY PO
     Route: 048
     Dates: start: 20070720, end: 20080826
  5. VYTORIN [Suspect]
     Indication: MUSCULOSKELETAL STIFFNESS
     Dosage: 10MG DAILY PO
     Route: 048
     Dates: start: 20070720, end: 20080826
  6. VYTORIN [Suspect]
     Indication: MYALGIA
     Dosage: 10MG DAILY PO
     Route: 048
     Dates: start: 20070720, end: 20080826

REACTIONS (7)
  - ARTHRALGIA [None]
  - BACK PAIN [None]
  - BLOOD CHOLESTEROL INCREASED [None]
  - DISCOMFORT [None]
  - INSOMNIA [None]
  - LOW DENSITY LIPOPROTEIN INCREASED [None]
  - PAIN IN EXTREMITY [None]
